FAERS Safety Report 22753279 (Version 3)
Quarter: 2023Q4

REPORT INFORMATION
  Report Type: Spontaneous
  Country: US (occurrence: US)
  Receive Date: 20230726
  Receipt Date: 20231120
  Transmission Date: 20240110
  Serious: Yes (Death, Other)
  Sender: FDA-Public Use
  Company Number: US-PFIZER INC-202300257056

PATIENT
  Age: 42 Year
  Sex: Female
  Weight: 50.35 kg

DRUGS (2)
  1. OXBRYTA [Suspect]
     Active Substance: VOXELOTOR
     Indication: Sickle cell disease
     Dosage: 1500 MG, DAILY
     Route: 048
  2. OXBRYTA [Suspect]
     Active Substance: VOXELOTOR
     Dosage: 500 MG, 3 TABLETS DAILY
     Route: 048

REACTIONS (4)
  - Death [Fatal]
  - Sluggishness [Unknown]
  - Nausea [Unknown]
  - Diarrhoea [Unknown]
